FAERS Safety Report 16062845 (Version 1)
Quarter: 2019Q1

REPORT INFORMATION
  Report Type: Spontaneous
  Country: US (occurrence: US)
  Receive Date: 20190211
  Receipt Date: 20190211
  Transmission Date: 20190418
  Serious: No
  Sender: FDA-Public Use
  Company Number: None

PATIENT
  Age: 48 Year
  Sex: Female

DRUGS (1)
  1. CAPECITABINE TAB 500MG [Suspect]
     Active Substance: CAPECITABINE
     Indication: BREAST CANCER FEMALE
     Dosage: ?          OTHER FREQUENCY:OTHER;?
     Route: 048
     Dates: start: 20180203

REACTIONS (7)
  - Therapy cessation [None]
  - Palmar-plantar erythrodysaesthesia syndrome [None]
  - Insomnia [None]
  - Abdominal discomfort [None]
  - Fatigue [None]
  - Skin exfoliation [None]
  - Condition aggravated [None]

NARRATIVE: CASE EVENT DATE: 20190211
